FAERS Safety Report 5849830-X (Version None)
Quarter: 2008Q3

REPORT INFORMATION
  Report Type: 
  Country: None (occurrence: None)
  Receive Date: 20080818
  Receipt Date: 20080818
  Transmission Date: 20090109
  Serious: Yes (Disabling, Other)
  Sender: FDA-Public Use
  Company Number: None

PATIENT
  Age: 38 Year
  Sex: Female
  Weight: 58.9676 kg

DRUGS (1)
  1. EFFEXOR XR [Suspect]
     Indication: ANXIETY
     Dosage: 187MG 1X A DAY
     Dates: start: 20000101, end: 20080101

REACTIONS (4)
  - ANGER [None]
  - DRUG DEPENDENCE [None]
  - PARAESTHESIA [None]
  - WITHDRAWAL SYNDROME [None]
